FAERS Safety Report 14509345 (Version 2)
Quarter: 2018Q1

REPORT INFORMATION
  Report Type: Spontaneous
  Country: JP (occurrence: JP)
  Receive Date: 20180209
  Receipt Date: 20180215
  Transmission Date: 20180509
  Serious: Yes (Other)
  Sender: FDA-Public Use
  Company Number: JP-GLAXOSMITHKLINE-JP2018021860

PATIENT
  Age: 5 Decade
  Sex: Male

DRUGS (1)
  1. NICORETTE [Suspect]
     Active Substance: NICOTINE
     Indication: PRODUCT USED FOR UNKNOWN INDICATION
     Dosage: 10 DF, UNK
     Route: 048
     Dates: end: 20180129

REACTIONS (5)
  - Incorrect drug administration duration [Unknown]
  - Aphasia [Recovering/Resolving]
  - Dizziness [Recovering/Resolving]
  - Nicotine dependence [Unknown]
  - Mental impairment [Recovering/Resolving]

NARRATIVE: CASE EVENT DATE: 201801
